FAERS Safety Report 18707324 (Version 2)
Quarter: 2021Q1

REPORT INFORMATION
  Report Type: Spontaneous
  Country: CA (occurrence: CA)
  Receive Date: 20210106
  Receipt Date: 20210206
  Transmission Date: 20210419
  Serious: Yes (Hospitalization)
  Sender: FDA-Public Use
  Company Number: CA-TEVA-2020-CA-1865152

PATIENT
  Age: 52 Year
  Sex: Female

DRUGS (5)
  1. BUDESONIDE?FORMOTEROL [Suspect]
     Active Substance: BUDESONIDE\FORMOTEROL
     Indication: ASTHMA
     Dosage: INHALER
     Route: 055
  2. DULOXETINE. [Suspect]
     Active Substance: DULOXETINE
     Indication: SCIATICA
     Dosage: 60 MILLIGRAM DAILY;
     Route: 065
  3. XYLOMETAZOLINE [Suspect]
     Active Substance: XYLOMETAZOLINE
     Dosage: 2?3 TIMES DAILY; TOPICAL NASAL DECONGESTANT SPRAY
     Route: 061
  4. SALBUTAMOL [Concomitant]
     Active Substance: ALBUTEROL
     Indication: ASTHMA
     Dosage: ADMINISTERED AS NEEDED
     Route: 065
  5. XYLOMETAZOLINE [Suspect]
     Active Substance: XYLOMETAZOLINE
     Indication: NASAL CONGESTION
     Dosage: TOPICAL NASAL DECONGESTANT SPRAY
     Route: 061

REACTIONS (3)
  - Thunderclap headache [Recovered/Resolved]
  - Rebound nasal congestion [Recovered/Resolved]
  - Reversible cerebral vasoconstriction syndrome [Recovered/Resolved]
